FAERS Safety Report 9713344 (Version 2)
Quarter: 2013Q4

REPORT INFORMATION
  Report Type: Spontaneous
  Country: US (occurrence: US)
  Receive Date: 20131126
  Receipt Date: 20131219
  Transmission Date: 20140711
  Serious: Yes (Other)
  Sender: FDA-Public Use
  Company Number: US-FRI-1000051519

PATIENT
  Age: 38 Year
  Sex: Female

DRUGS (3)
  1. ARMOUR THYROID [Suspect]
     Indication: HYPOTHYROIDISM
     Dosage: 75MG
     Route: 048
     Dates: start: 2010, end: 201309
  2. ARMOUR THYROID [Suspect]
     Indication: HYPOTHYROIDISM
     Dosage: 90MG
     Route: 048
     Dates: start: 201309, end: 201311
  3. ARMOUR THYROID [Suspect]
     Dosage: 75MG
     Route: 048
     Dates: start: 201311

REACTIONS (2)
  - Exophthalmos [Recovered/Resolved]
  - Blood thyroid stimulating hormone increased [Recovered/Resolved]
